FAERS Safety Report 6360820-3 (Version None)
Quarter: 2009Q3

REPORT INFORMATION
  Report Type: 
  Country: None (occurrence: None)
  Receive Date: 20090918
  Receipt Date: 20090907
  Transmission Date: 20100115
  Serious: Yes (Other)
  Sender: FDA-Public Use
  Company Number: GB-ROCHE-655131

PATIENT
  Age: 17 Year
  Sex: Female

DRUGS (4)
  1. TAMIFLU [Suspect]
     Indication: DRUG USE FOR UNKNOWN INDICATION
     Route: 065
     Dates: start: 20090831
  2. PARACETAMOL [Concomitant]
  3. IBUPROFEN [Concomitant]
     Dosage: DRUG NAME REPORTED AS: IBUPFROMEN.
  4. YASMIN [Concomitant]

REACTIONS (2)
  - EYE HAEMORRHAGE [None]
  - VOMITING [None]
